FAERS Safety Report 25522137 (Version 1)
Quarter: 2025Q3

REPORT INFORMATION
  Report Type: Spontaneous
  Country: EU (occurrence: EU)
  Receive Date: 20250707
  Receipt Date: 20250707
  Transmission Date: 20251020
  Serious: Yes (Other)
  Sender: CELLTRION
  Company Number: EU-SAMSUNG BIOEPIS-SB-2025-06329

PATIENT

DRUGS (1)
  1. TRASTUZUMAB [Suspect]
     Active Substance: TRASTUZUMAB
     Indication: Invasive ductal breast carcinoma

REACTIONS (4)
  - Granulomatous lymphadenitis [Unknown]
  - Hilar lymphadenopathy [Unknown]
  - Pulmonary mass [Unknown]
  - Lymphadenopathy mediastinal [Unknown]
